FAERS Safety Report 24140177 (Version 2)
Quarter: 2024Q3

REPORT INFORMATION
  Report Type: Report from Study
  Country: US (occurrence: US)
  Receive Date: 20240726
  Receipt Date: 20240824
  Transmission Date: 20241016
  Serious: Yes (Hospitalization)
  Sender: ABBVIE
  Company Number: US-ABBVIE-5850801

PATIENT
  Age: 86 Year
  Sex: Female
  Weight: 39.009 kg

DRUGS (1)
  1. CREON [Suspect]
     Active Substance: PANCRELIPASE AMYLASE\PANCRELIPASE LIPASE\PANCRELIPASE PROTEASE
     Indication: Pancreatic failure
     Route: 048
     Dates: start: 20230405

REACTIONS (10)
  - Fall [Recovering/Resolving]
  - Cystitis [Recovering/Resolving]
  - Urinary tract infection [Recovering/Resolving]
  - Weight decreased [Not Recovered/Not Resolved]
  - Back pain [Unknown]
  - Cervical vertebral fracture [Unknown]
  - Craniofacial fracture [Unknown]
  - Dental caries [Unknown]
  - Vomiting [Unknown]
  - Asthenia [Unknown]

NARRATIVE: CASE EVENT DATE: 20230405
